FAERS Safety Report 22155677 (Version 1)
Quarter: 2023Q1

REPORT INFORMATION
  Report Type: Spontaneous
  Country: US (occurrence: US)
  Receive Date: 20230330
  Receipt Date: 20230330
  Transmission Date: 20230418
  Serious: Yes (Other)
  Sender: FDA-Public Use
  Company Number: US-SUN PHARMACEUTICAL INDUSTRIES LTD-2023R1-382759

PATIENT
  Age: 72 Year
  Sex: Female

DRUGS (1)
  1. PHENTERMINE [Suspect]
     Active Substance: PHENTERMINE
     Indication: Obesity
     Dosage: UNK
     Route: 065

REACTIONS (2)
  - Acute myocardial infarction [Unknown]
  - Arteriospasm coronary [Unknown]
